FAERS Safety Report 24828921 (Version 3)
Quarter: 2025Q1

REPORT INFORMATION
  Report Type: Spontaneous
  Country: JP (occurrence: JP)
  Receive Date: 20250110
  Receipt Date: 20250203
  Transmission Date: 20250408
  Serious: Yes (Death, Hospitalization, Disabling)
  Sender: AMGEN
  Company Number: JP-DSJP-DS-2025-118256-

PATIENT
  Age: 63 Year
  Sex: Female

DRUGS (13)
  1. DENOSUMAB [Suspect]
     Active Substance: DENOSUMAB
     Indication: Osteoporosis
     Dosage: 60 MG, ONCE EVERY 6 MO
     Route: 058
     Dates: start: 20241018, end: 20241018
  2. ELDECALCITOL [Concomitant]
     Active Substance: ELDECALCITOL
     Indication: Product used for unknown indication
     Dosage: 0.75 UG, QD
     Route: 048
  3. PREDONINE [Concomitant]
     Active Substance: PREDNISOLONE
     Indication: Myasthenia gravis
     Dosage: 5 MG, QD
     Route: 048
     Dates: end: 20241117
  4. FEBUXOSTAT [Concomitant]
     Active Substance: FEBUXOSTAT
     Indication: Hyperuricaemia
     Dosage: 20 MG, QD
     Route: 048
     Dates: end: 20241117
  5. AMLODIPINE [Concomitant]
     Active Substance: AMLODIPINE BESYLATE
     Indication: Hypertension
     Dosage: 5 MG, QD
     Route: 048
     Dates: end: 20241117
  6. RABEPRAZOLE SODIUM [Concomitant]
     Active Substance: RABEPRAZOLE SODIUM
     Indication: Gastrooesophageal reflux disease
     Dosage: 10 MG, QD
     Route: 048
     Dates: end: 20241117
  7. CYCLOSPORINE [Concomitant]
     Active Substance: CYCLOSPORINE
     Indication: Myasthenia gravis
     Dosage: 100 MG, BID
     Route: 048
     Dates: end: 20241117
  8. MESTINON [Concomitant]
     Active Substance: PYRIDOSTIGMINE BROMIDE
     Indication: Myasthenia gravis
     Dosage: 60 MG, BID
     Route: 048
     Dates: end: 20241117
  9. ESZOPICLONE [Concomitant]
     Active Substance: ESZOPICLONE
     Indication: Insomnia
     Dosage: 1 MG, QD
     Route: 048
     Dates: end: 20241117
  10. HERBALS [Concomitant]
     Active Substance: HERBALS
     Indication: Constipation
     Dosage: 2.5 G, QD
     Route: 048
     Dates: end: 20241117
  11. BERBERINE\GERANIUM [Concomitant]
     Active Substance: BERBERINE\GERANIUM
     Indication: Diarrhoea
     Dosage: 1 DOSAGE FORM, BID
     Route: 048
     Dates: end: 20241117
  12. LEVOTHYROXINE SODIUM [Concomitant]
     Active Substance: LEVOTHYROXINE SODIUM
     Indication: Hypothyroidism
     Dosage: 75 UG, QD
     Route: 048
     Dates: end: 20241117
  13. Alfacalcidol amel [Concomitant]
     Indication: Osteoporosis
     Dosage: 0.25 UG, QD
     Route: 048
     Dates: end: 20241107

REACTIONS (4)
  - Diplopia [Recovered/Resolved]
  - Aortic dissection [Fatal]
  - Hypocalcaemia [Recovered/Resolved]
  - Dysphagia [Recovering/Resolving]

NARRATIVE: CASE EVENT DATE: 20241025
